FAERS Safety Report 9803974 (Version 2)
Quarter: 2014Q1

REPORT INFORMATION
  Report Type: Spontaneous
  Country: US (occurrence: US)
  Receive Date: 20140108
  Receipt Date: 20140120
  Transmission Date: 20141002
  Serious: Yes (Death)
  Sender: FDA-Public Use
  Company Number: US-009507513-1401USA000150

PATIENT
  Age: 54 Year
  Sex: Male

DRUGS (5)
  1. PRINIVIL [Suspect]
     Dosage: UNK
     Route: 048
  2. AMLODIPINE [Suspect]
     Dosage: UNK
  3. BUPROPION HYDROCHLORIDE [Suspect]
     Dosage: UNK
  4. QUETIAPINE FUMARATE [Suspect]
     Dosage: UNK
  5. ACETAMINOPHEN [Suspect]
     Dosage: UNK

REACTIONS (1)
  - Death [Fatal]
